FAERS Safety Report 24160898 (Version 1)
Quarter: 2024Q3

REPORT INFORMATION
  Report Type: Spontaneous
  Country: CN (occurrence: CN)
  Receive Date: 20240801
  Receipt Date: 20240801
  Transmission Date: 20241017
  Serious: Yes (Hospitalization)
  Sender: UNKNOWN
  Company Number: CN-AstraZeneca-2024A167383

PATIENT

DRUGS (1)
  1. METOPROLOL SUCCINATE [Suspect]
     Active Substance: METOPROLOL SUCCINATE
     Indication: Blood pressure abnormal
     Dosage: 23.75 MILLIGRAM, QD
     Route: 048
     Dates: start: 20240713, end: 20240716

REACTIONS (8)
  - Prostatic specific antigen increased [Unknown]
  - Bronchitis chronic [Unknown]
  - Emphysema [Unknown]
  - Cerebral hypoperfusion [Unknown]
  - Cerebral infarction [Unknown]
  - Atrial fibrillation [Unknown]
  - Arrhythmia [Unknown]
  - Hypotension [Unknown]

NARRATIVE: CASE EVENT DATE: 20240617
